FAERS Safety Report 5416693-6 (Version None)
Quarter: 2007Q3

REPORT INFORMATION
  Report Type: 
  Country: None (occurrence: None)
  Receive Date: 20070816
  Receipt Date: 20070808
  Transmission Date: 20080115
  Serious: Yes (Other)
  Sender: FDA-Public Use
  Company Number: CA-AMGEN-KDL236966

PATIENT
  Sex: Female
  Weight: 65 kg

DRUGS (3)
  1. ENBREL [Suspect]
     Indication: RHEUMATOID ARTHRITIS
     Route: 058
     Dates: start: 20070508
  2. PREDNISONE TAB [Concomitant]
     Dates: start: 20070417
  3. NAPROSYN [Concomitant]

REACTIONS (1)
  - HYPOAESTHESIA [None]
